FAERS Safety Report 5292062-7 (Version None)
Quarter: 2007Q2

REPORT INFORMATION
  Report Type: 
  Country: None (occurrence: None)
  Receive Date: 20070403
  Receipt Date: 20070326
  Transmission Date: 20071010
  Serious: Yes (Life-Threatening, Other)
  Sender: FDA-Public Use
  Company Number: 2007RR-06588

PATIENT
  Age: 57 Year
  Sex: Male

DRUGS (1)
  1. CEPHALEXIN [Suspect]
     Indication: URINARY TRACT INFECTION
     Dosage: ORAL
     Route: 048
     Dates: start: 20060914, end: 20060917

REACTIONS (4)
  - HAEMATURIA [None]
  - HAEMORRHAGE [None]
  - PLATELET COUNT DECREASED [None]
  - PURPURA [None]
